FAERS Safety Report 21581559 (Version 2)
Quarter: 2022Q4

REPORT INFORMATION
  Report Type: Spontaneous
  Country: US (occurrence: US)
  Receive Date: 20221111
  Receipt Date: 20221126
  Transmission Date: 20230113
  Serious: Yes (Hospitalization, Disabling, Congenital Anomaly, Other)
  Sender: FDA-Public Use
  Company Number: US-AMGEN-USASP2022191698

PATIENT

DRUGS (1)
  1. CORLANOR [Suspect]
     Active Substance: IVABRADINE HYDROCHLORIDE
     Indication: Exposure during pregnancy
     Dosage: UNK
     Route: 065
     Dates: start: 2022

REACTIONS (1)
  - Cleft lip and palate [Unknown]

NARRATIVE: CASE EVENT DATE: 20220101
